FAERS Safety Report 15854049 (Version 2)
Quarter: 2019Q1

REPORT INFORMATION
  Report Type: Spontaneous
  Country: US (occurrence: US)
  Receive Date: 20190122
  Receipt Date: 20190129
  Transmission Date: 20190417
  Serious: No
  Sender: FDA-Public Use
  Company Number: US-PFIZER INC-2019025451

PATIENT
  Sex: Male
  Weight: 117.9 kg

DRUGS (1)
  1. GABAPENTIN. [Suspect]
     Active Substance: GABAPENTIN
     Indication: NEUROPATHY PERIPHERAL
     Dosage: 700 MG, DAILY (SPLIT INTO 5 DOSES)

REACTIONS (2)
  - Drug ineffective for unapproved indication [Unknown]
  - Product dose omission [Unknown]
